FAERS Safety Report 10303120 (Version 1)
Quarter: 2014Q3

REPORT INFORMATION
  Report Type: Spontaneous
  Country: US (occurrence: US)
  Receive Date: 20140714
  Receipt Date: 20140714
  Transmission Date: 20150326
  Serious: No
  Sender: FDA-Public Use
  Company Number: US-ASTELLAS-2014US003615

PATIENT
  Age: 76 Year
  Sex: Male

DRUGS (2)
  1. MYRBETRIQ [Suspect]
     Active Substance: MIRABEGRON
     Dosage: HALF 50 MG TABLET, UID/QD
     Route: 048
     Dates: start: 20140329, end: 20140404
  2. MYRBETRIQ [Suspect]
     Active Substance: MIRABEGRON
     Indication: PRODUCT USED FOR UNKNOWN INDICATION
     Route: 048
     Dates: start: 2014, end: 20140328

REACTIONS (1)
  - Wrong technique in drug usage process [Unknown]

NARRATIVE: CASE EVENT DATE: 20140329
